FAERS Safety Report 20574897 (Version 8)
Quarter: 2022Q2

REPORT INFORMATION
  Report Type: Spontaneous
  Country: US (occurrence: US)
  Receive Date: 20220310
  Receipt Date: 20220520
  Transmission Date: 20220720
  Serious: Yes (Other)
  Sender: FDA-Public Use
  Company Number: US-UNITED THERAPEUTICS-UNT-2022-004838

PATIENT
  Age: 59 Year
  Sex: Female
  Weight: 56.689 kg

DRUGS (18)
  1. TYVASO [Suspect]
     Active Substance: TREPROSTINIL
     Indication: Pulmonary arterial hypertension
     Dosage: UNK
     Dates: start: 20220215
  2. TYVASO [Suspect]
     Active Substance: TREPROSTINIL
     Dosage: 18-72 ?G, QID
  3. TYVASO [Suspect]
     Active Substance: TREPROSTINIL
     Dosage: 18 ?G, QID
  4. TYVASO [Suspect]
     Active Substance: TREPROSTINIL
     Dosage: UNK
  5. TYVASO [Suspect]
     Active Substance: TREPROSTINIL
     Dosage: 30 ?G
     Dates: start: 202203
  6. TYVASO [Suspect]
     Active Substance: TREPROSTINIL
     Dosage: 36 ?G, QID
  7. TYVASO [Suspect]
     Active Substance: TREPROSTINIL
     Dosage: 42 ?G (PER TREATMENT)
  8. TYVASO [Suspect]
     Active Substance: TREPROSTINIL
     Dosage: 48 ?G (PER TREATMENT)
     Dates: start: 20220411
  9. TYVASO [Suspect]
     Active Substance: TREPROSTINIL
     Dosage: 54 ?G (PER TREATMENT)
     Dates: start: 20220418
  10. TADALAFIL [Suspect]
     Active Substance: TADALAFIL
     Indication: Pulmonary arterial hypertension
     Dosage: UNK (TABLET)
     Route: 065
  11. TADALAFIL [Suspect]
     Active Substance: TADALAFIL
     Dosage: UNK (INCREASED TO 2 TABLETS DAILY)
     Route: 065
     Dates: start: 20220312, end: 20220317
  12. TADALAFIL [Suspect]
     Active Substance: TADALAFIL
     Dosage: UNK (DECREASED DOSE)
     Route: 065
     Dates: start: 20220317
  13. TADALAFIL [Suspect]
     Active Substance: TADALAFIL
     Dosage: 20 MG, QD (DAILY)
     Route: 065
  14. SILDENAFIL CITRATE [Concomitant]
     Active Substance: SILDENAFIL CITRATE
     Indication: Product used for unknown indication
     Dosage: UNK
     Route: 065
  15. OFEV [Concomitant]
     Active Substance: NINTEDANIB
     Indication: Product used for unknown indication
     Dosage: 100 MG, BID
     Route: 065
  16. MYCOPHENOLATE MOFETIL [Concomitant]
     Active Substance: MYCOPHENOLATE MOFETIL
     Indication: Product used for unknown indication
     Dosage: 720 MG, BID
     Route: 065
  17. PANTOPRAZOLE [Concomitant]
     Active Substance: PANTOPRAZOLE
     Indication: Product used for unknown indication
     Dosage: 20 MG, QD
     Route: 065
  18. LOPERAMIDE [Concomitant]
     Active Substance: LOPERAMIDE
     Indication: Product used for unknown indication
     Dosage: 2 MG, PRN
     Route: 065

REACTIONS (12)
  - Syncope [Recovered/Resolved]
  - Seizure [Recovered/Resolved]
  - Muscle twitching [Recovered/Resolved]
  - Gastrointestinal sounds abnormal [Recovered/Resolved]
  - Hypotension [Recovered/Resolved]
  - Cough [Not Recovered/Not Resolved]
  - Dizziness [Unknown]
  - Diarrhoea [Not Recovered/Not Resolved]
  - Dizziness postural [Not Recovered/Not Resolved]
  - Fatigue [Recovered/Resolved]
  - Headache [Recovered/Resolved]
  - Device electrical finding [Unknown]

NARRATIVE: CASE EVENT DATE: 20220301
